FAERS Safety Report 19067819 (Version 1)
Quarter: 2021Q1

REPORT INFORMATION
  Report Type: Spontaneous
  Country: DE (occurrence: DE)
  Receive Date: 20210329
  Receipt Date: 20210329
  Transmission Date: 20210420
  Serious: Yes (Other)
  Sender: FDA-Public Use
  Company Number: DE-PFIZER INC-2021304426

PATIENT
  Sex: Male

DRUGS (7)
  1. SPIRONOLACTONE. [Suspect]
     Active Substance: SPIRONOLACTONE
     Dosage: UNK
     Route: 065
  2. METFORMIN HCL [Suspect]
     Active Substance: METFORMIN HYDROCHLORIDE
     Dosage: UNK
     Route: 065
  3. FUROSEMIDE. [Suspect]
     Active Substance: FUROSEMIDE
     Dosage: UNK
     Route: 065
  4. ALLOPURINOL. [Suspect]
     Active Substance: ALLOPURINOL
     Dosage: UNK
     Route: 065
  5. PANTOPRAZOLE [Suspect]
     Active Substance: PANTOPRAZOLE
     Dosage: UNK
     Route: 065
  6. PREDNISOLONE. [Suspect]
     Active Substance: PREDNISOLONE
     Dosage: 7.5 MILLIGRAM, QD
     Route: 065
  7. ENTRESTO [Suspect]
     Active Substance: SACUBITRIL\VALSARTAN
     Dosage: 97/103 MILLIGRAM, QD
     Route: 065
     Dates: start: 2020

REACTIONS (3)
  - Brain natriuretic peptide increased [Unknown]
  - Hypotension [Unknown]
  - Fluid retention [Unknown]

NARRATIVE: CASE EVENT DATE: 202008
